FAERS Safety Report 15861695 (Version 2)
Quarter: 2019Q2

REPORT INFORMATION
  Report Type: Spontaneous
  Country: US (occurrence: US)
  Receive Date: 20190124
  Receipt Date: 20190415
  Transmission Date: 20190711
  Serious: No
  Sender: FDA-Public Use
  Company Number: US-PFIZER INC-2019030201

PATIENT
  Age: 33 Year
  Sex: Male
  Weight: 76.74 kg

DRUGS (2)
  1. GABAPENTIN. [Suspect]
     Active Substance: GABAPENTIN
     Indication: DISCOMFORT
     Dosage: UNK
  2. NAPROSYN [Suspect]
     Active Substance: NAPROXEN
     Indication: DISCOMFORT
     Dosage: UNK

REACTIONS (1)
  - Drug ineffective for unapproved indication [Unknown]
